FAERS Safety Report 25726940 (Version 2)
Quarter: 2025Q3

REPORT INFORMATION
  Report Type: Spontaneous
  Country: EU (occurrence: EU)
  Receive Date: 20250826
  Receipt Date: 20250908
  Transmission Date: 20251021
  Serious: Yes (Hospitalization, Other)
  Sender: FRESENIUS KABI
  Company Number: None

PATIENT
  Age: 52 Year
  Sex: Female

DRUGS (1)
  1. PIPERACILLIN AND TAZOBACTAM [Suspect]
     Active Substance: PIPERACILLIN SODIUM\TAZOBACTAM SODIUM
     Indication: Pneumonitis
     Route: 042
     Dates: start: 20241223, end: 20250104

REACTIONS (5)
  - Toxic epidermal necrolysis [Recovered/Resolved with Sequelae]
  - Erythema [Recovered/Resolved with Sequelae]
  - Rash maculo-papular [Recovering/Resolving]
  - Pruritus [Recovered/Resolved with Sequelae]
  - Vasculitis [Recovered/Resolved with Sequelae]

NARRATIVE: CASE EVENT DATE: 20241223
